FAERS Safety Report 9031989 (Version 1)
Quarter: 2013Q1

REPORT INFORMATION
  Report Type: Spontaneous
  Country: JP (occurrence: JP)
  Receive Date: 20130125
  Receipt Date: 20130125
  Transmission Date: 20140127
  Serious: Yes (Other)
  Sender: FDA-Public Use
  Company Number: JP-ASTELLAS-2013JP000207

PATIENT
  Age: 83 Year
  Sex: Female

DRUGS (1)
  1. BETANIS [Suspect]
     Dosage: 25 MG, UID/QD
     Route: 048

REACTIONS (1)
  - Renal impairment [Unknown]
